FAERS Safety Report 5413040-0 (Version None)
Quarter: 2007Q3

REPORT INFORMATION
  Report Type: 
  Country: None (occurrence: None)
  Receive Date: 20070730
  Receipt Date: 20070713
  Transmission Date: 20080115
  Serious: Yes (Other)
  Sender: FDA-Public Use
  Company Number: GAM-059-07-AU

PATIENT
  Age: 79 Year
  Sex: Female

DRUGS (1)
  1. OCTAGAM [Suspect]
     Indication: IDIOPATHIC THROMBOCYTOPENIC PURPURA
     Dosage: 30 G, I.V.
     Route: 042
     Dates: start: 20070709, end: 20070710

REACTIONS (4)
  - ATRIAL FIBRILLATION [None]
  - CHEST PAIN [None]
  - INFUSION RELATED REACTION [None]
  - TACHYCARDIA [None]
